FAERS Safety Report 10153453 (Version 1)
Quarter: 2014Q2

REPORT INFORMATION
  Report Type: Spontaneous
  Country: US (occurrence: US)
  Receive Date: 20140505
  Receipt Date: 20140505
  Transmission Date: 20141212
  Serious: Yes (Life-Threatening)
  Sender: FDA-Public Use
  Company Number: US-ACTAVIS-2014-09087

PATIENT
  Age: 50 Year
  Sex: Male

DRUGS (2)
  1. AMPICILLIN SODIUM (WATSON LABORATORIES) [Suspect]
     Indication: CELLULITIS
     Dosage: UNKNOWN
     Route: 042
  2. SODIUM CHLORIDE [Concomitant]
     Indication: PRODUCT USED FOR UNKNOWN INDICATION
     Dosage: 60 ML, Q1H
     Route: 042

REACTIONS (2)
  - Anaphylactic reaction [Recovered/Resolved]
  - Infusion related reaction [None]
